FAERS Safety Report 4723272-2 (Version None)
Quarter: 2005Q3

REPORT INFORMATION
  Report Type: 
  Country: None (occurrence: None)
  Receive Date: 20050719
  Receipt Date: 20040924
  Transmission Date: 20060218
  Serious: Yes (Hospitalization)
  Sender: FDA-Public Use
  Company Number: 205301

PATIENT
  Age: 52 Year
  Sex: Male

DRUGS (6)
  1. AVONEX [Suspect]
     Indication: MULTIPLE SCLEROSIS
     Dosage: 30 UG; QW; IM
     Route: 030
     Dates: start: 19970101, end: 20030101
  2. AVONEX [Suspect]
     Indication: MULTIPLE SCLEROSIS
     Dosage: 30 UG; QW; IM
     Route: 030
     Dates: start: 20030101
  3. PLAVIX [Concomitant]
  4. ELAVIL [Concomitant]
  5. ATIVAN [Concomitant]
  6. ZOCOR [Concomitant]

REACTIONS (2)
  - ABDOMINAL PAIN [None]
  - HEADACHE [None]
